FAERS Safety Report 7560254-X (Version None)
Quarter: 2011Q2

REPORT INFORMATION
  Report Type: 
  Country: None (occurrence: None)
  Receive Date: 20110621
  Receipt Date: 20110614
  Transmission Date: 20111010
  Serious: Yes (Other)
  Sender: FDA-Public Use
  Company Number: DE-PFIZER INC-2011132240

PATIENT
  Age: 71 Year
  Sex: Male

DRUGS (2)
  1. BLINDED THERAPY [Suspect]
     Indication: NON-SMALL CELL LUNG CANCER
     Dosage: UNK
     Route: 030
     Dates: start: 20110304, end: 20110304
  2. METRONIDAZOLE [Suspect]
     Indication: PNEUMONIA
     Dosage: UNK

REACTIONS (1)
  - CLOSTRIDIAL INFECTION [None]
